FAERS Safety Report 11784756 (Version 1)
Quarter: 2015Q4

REPORT INFORMATION
  Report Type: Spontaneous
  Country: US (occurrence: US)
  Receive Date: 20151130
  Receipt Date: 20151130
  Transmission Date: 20160305
  Serious: Yes (Other)
  Sender: FDA-Public Use
  Company Number: US-JNJFOC-20151117239

PATIENT
  Age: 87 Year
  Sex: Female
  Weight: 63.5 kg

DRUGS (2)
  1. TYLENOL PM EXTRA STRENGTH [Suspect]
     Active Substance: ACETAMINOPHEN\DIPHENHYDRAMINE HYDROCHLORIDE
     Indication: SLEEP DISORDER THERAPY
     Dosage: AT NIGHT
     Route: 048
     Dates: end: 20151115
  2. TYLENOL PM EXTRA STRENGTH [Suspect]
     Active Substance: ACETAMINOPHEN\DIPHENHYDRAMINE HYDROCHLORIDE
     Indication: ARTHRALGIA
     Dosage: AT NIGHT
     Route: 048
     Dates: end: 20151115

REACTIONS (3)
  - Visual acuity reduced [Unknown]
  - Contraindicated drug administered [None]
  - Drug administration error [Unknown]
